FAERS Safety Report 12267647 (Version 1)
Quarter: 2016Q2

REPORT INFORMATION
  Report Type: Spontaneous
  Country: IN (occurrence: IN)
  Receive Date: 20160414
  Receipt Date: 20160414
  Transmission Date: 20160815
  Serious: Yes (Hospitalization, Other)
  Sender: FDA-Public Use
  Company Number: IN-GLAXOSMITHKLINE-IN2016GSK050542

PATIENT
  Age: 24 Year
  Sex: Male

DRUGS (6)
  1. GLYCOPYRROLATE. [Concomitant]
     Active Substance: GLYCOPYRROLATE
     Indication: PREMEDICATION
     Dosage: 2 MG, UNK
     Route: 042
  2. FENTANYL. [Concomitant]
     Active Substance: FENTANYL
     Indication: PREMEDICATION
     Dosage: 30 MG, UNK
     Route: 042
  3. RANITIDINE. [Suspect]
     Active Substance: RANITIDINE
     Indication: PREMEDICATION
     Dosage: 50 MG, UNK
     Route: 042
  4. KETAMINE [Concomitant]
     Active Substance: KETAMINE
  5. RANITIDINE. [Suspect]
     Active Substance: RANITIDINE
     Indication: ABDOMINAL PAIN
  6. SUCCINYLCHOLINE [Concomitant]
     Active Substance: SUCCINYLCHOLINE

REACTIONS (13)
  - Hypotension [Recovered/Resolved]
  - Flank pain [Unknown]
  - Costovertebral angle tenderness [Unknown]
  - Chest discomfort [Unknown]
  - Tachycardia [Recovered/Resolved]
  - Bronchospasm [Recovered/Resolved]
  - Abdominal pain [Unknown]
  - Hydronephrosis [Unknown]
  - Ureterolithiasis [Unknown]
  - Flushing [Unknown]
  - Anaphylactic reaction [Recovered/Resolved]
  - Urticaria [Unknown]
  - Vomiting [Unknown]
